FAERS Safety Report 5188336-0 (Version None)
Quarter: 2006Q4

REPORT INFORMATION
  Report Type: 
  Country: None (occurrence: None)
  Receive Date: 20061221
  Receipt Date: 20061023
  Transmission Date: 20070319
  Serious: Yes (Hospitalization)
  Sender: FDA-Public Use
  Company Number: AU-GLAXOSMITHKLINE-B0443540A

PATIENT
  Age: 79 Year
  Sex: Male

DRUGS (6)
  1. NICABATE CQ CLEAR 14MG [Suspect]
     Indication: SMOKING CESSATION THERAPY
     Dosage: 14MG PER DAY
     Route: 062
     Dates: start: 20061009, end: 20061023
  2. NICABATE CQ 21MG [Suspect]
     Indication: SMOKING CESSATION THERAPY
     Dosage: 21MG PER DAY
     Route: 062
  3. ACETAMINOPHEN [Concomitant]
     Route: 065
  4. LIPITOR [Concomitant]
     Dosage: 10MG PER DAY
     Route: 048
  5. ASPIRIN [Concomitant]
  6. MIRTAZAPINE [Concomitant]
     Indication: DEPRESSION

REACTIONS (3)
  - FEBRILE CONVULSION [None]
  - SYNCOPE [None]
  - VOMITING [None]
